FAERS Safety Report 6879793-X (Version None)
Quarter: 2010Q3

REPORT INFORMATION
  Report Type: 
  Country: None (occurrence: None)
  Receive Date: 20100728
  Receipt Date: 20100721
  Transmission Date: 20110219
  Serious: Yes (Death)
  Sender: FDA-Public Use
  Company Number: PHHO2010TR08888

PATIENT
  Sex: Male

DRUGS (3)
  1. TASIGNA [Suspect]
     Indication: GASTROINTESTINAL STROMAL TUMOUR
     Dosage: 200 MG, BID
     Route: 048
  2. IMATINIB [Concomitant]
     Dosage: UNK
     Dates: start: 20071210
  3. SUNITINIB MALATE [Concomitant]

REACTIONS (1)
  - DEATH [None]
